FAERS Safety Report 8181290-9 (Version None)
Quarter: 2012Q1

REPORT INFORMATION
  Report Type: 
  Country: None (occurrence: None)
  Receive Date: 20120302
  Receipt Date: 20120222
  Transmission Date: 20120608
  Serious: Yes (Death, Other)
  Sender: FDA-Public Use
  Company Number: US-PFIZER INC-2012043302

PATIENT
  Sex: Male
  Weight: 74.38 kg

DRUGS (7)
  1. MORPHINE SULFATE [Suspect]
     Dosage: UNK
     Route: 048
  2. CETIRIZINE [Suspect]
     Dosage: UNK
     Route: 065
  3. NALOXONE [Concomitant]
  4. GABAPENTIN [Suspect]
     Dosage: UNK
     Route: 065
  5. ASPIRIN [Suspect]
     Dosage: UNK
     Route: 065
  6. HYDROXYZINE PAMOATE [Suspect]
     Route: 065
  7. LAMOTRIGINE [Concomitant]

REACTIONS (4)
  - CARDIAC ARREST [None]
  - MULTIPLE DRUG OVERDOSE INTENTIONAL [None]
  - COMPLETED SUICIDE [None]
  - CONVULSION [None]
